FAERS Safety Report 21048490 (Version 2)
Quarter: 2022Q3

REPORT INFORMATION
  Report Type: Spontaneous
  Country: GB (occurrence: GB)
  Receive Date: 20220706
  Receipt Date: 20220713
  Transmission Date: 20221027
  Serious: Yes (Life-Threatening, Hospitalization, Disabling, Other)
  Sender: FDA-Public Use
  Company Number: None

PATIENT
  Age: 58 Year
  Sex: Male

DRUGS (9)
  1. METHOTREXATE [Suspect]
     Active Substance: METHOTREXATE
     Indication: Psoriatic arthropathy
     Dosage: 25MG SC WEEKLY
     Route: 058
     Dates: end: 20220613
  2. COTRIMOXAZOLE [Suspect]
     Active Substance: SULFAMETHOXAZOLE\TRIMETHOPRIM
     Indication: Tooth abscess
     Dosage: 960MG TWICE DAILY
     Dates: start: 20220526, end: 20220613
  3. CALCIUM CARBONATE\CHOLECALCIFEROL [Concomitant]
     Active Substance: CALCIUM CARBONATE\CHOLECALCIFEROL
  4. ATORVASTATIN [Concomitant]
     Active Substance: ATORVASTATIN
  5. CLOPIDOGREL [Concomitant]
     Active Substance: CLOPIDOGREL BISULFATE
  6. FOLIC ACID [Concomitant]
     Active Substance: FOLIC ACID
  7. LANSOPRAZOLE [Concomitant]
     Active Substance: LANSOPRAZOLE
  8. LORATADINE [Concomitant]
     Active Substance: LORATADINE
  9. TRAMADOL [Concomitant]
     Active Substance: TRAMADOL

REACTIONS (3)
  - Pancytopenia [Recovered/Resolved]
  - Contraindicated product administered [Unknown]
  - Neutropenic sepsis [Unknown]

NARRATIVE: CASE EVENT DATE: 20220613
